FAERS Safety Report 6906459-X (Version None)
Quarter: 2010Q3

REPORT INFORMATION
  Report Type: 
  Country: None (occurrence: None)
  Receive Date: 20100804
  Receipt Date: 20100622
  Transmission Date: 20110219
  Serious: Yes (Death, Hospitalization)
  Sender: FDA-Public Use
  Company Number: US-BAXTER-2010BH006506

PATIENT
  Sex: Female

DRUGS (1)
  1. HEPARIN SODIUM [Suspect]
     Indication: ENDARTERECTOMY
     Route: 065
     Dates: start: 20080213

REACTIONS (5)
  - ACUTE RESPIRATORY DISTRESS SYNDROME [None]
  - AORTIC ANEURYSM [None]
  - CARDIO-RESPIRATORY ARREST [None]
  - HYPOTENSION [None]
  - RESPIRATORY DISTRESS [None]
